FAERS Safety Report 10552844 (Version 1)
Quarter: 2014Q4

REPORT INFORMATION
  Report Type: Spontaneous
  Country: NO (occurrence: NO)
  Receive Date: 20141029
  Receipt Date: 20141029
  Transmission Date: 20150529
  Serious: Yes (Other)
  Sender: FDA-Public Use
  Company Number: NO-PFIZER INC-2014294305

PATIENT
  Age: 23 Year
  Sex: Male
  Weight: 70 kg

DRUGS (19)
  1. RIVOTRIL [Concomitant]
     Active Substance: CLONAZEPAM
     Indication: INSOMNIA
     Dates: start: 20140409, end: 20140423
  2. SELSUN [Concomitant]
     Active Substance: SELENIUM SULFIDE
     Indication: SEBORRHOEA
     Dates: start: 20130525
  3. MODIODAL [Concomitant]
     Active Substance: MODAFINIL
     Indication: FATIGUE
     Dates: start: 20140409, end: 20140904
  4. PARACET [Concomitant]
     Active Substance: ACETAMINOPHEN
     Indication: PAIN
     Dosage: UNK
  5. LYRICA [Suspect]
     Active Substance: PREGABALIN
     Indication: NEUROPATHY PERIPHERAL
     Dosage: 325 MG, 1X/DAY
     Dates: start: 20130611, end: 20140430
  6. SINGULAIR [Concomitant]
     Active Substance: MONTELUKAST SODIUM
     Indication: ASTHMA
     Dates: start: 2006
  7. ATROVENT [Concomitant]
     Active Substance: IPRATROPIUM BROMIDE
     Indication: ASTHMA
     Dates: start: 20130304
  8. NASONEX [Concomitant]
     Active Substance: MOMETASONE FUROATE
     Indication: HYPERSENSITIVITY
     Dates: start: 20060111, end: 2014
  9. LIORESAL [Concomitant]
     Active Substance: BACLOFEN
     Indication: MUSCLE SPASMS
     Dates: start: 20130821
  10. OXYCONTIN [Concomitant]
     Active Substance: OXYCODONE HYDROCHLORIDE
     Indication: NEURALGIA
     Dates: start: 20120613
  11. SYMBICORT [Concomitant]
     Active Substance: BUDESONIDE\FORMOTEROL FUMARATE DIHYDRATE
     Indication: ASTHMA
     Dates: start: 20110420
  12. IBUX [Concomitant]
     Active Substance: IBUPROFEN
     Indication: INFLAMMATION
     Dosage: UNK
  13. KETORAX [Concomitant]
     Active Substance: KETOBEMIDONE HYDROCHLORIDE
     Indication: NEURALGIA
     Dates: start: 2013
  14. RECTOGESIC [Concomitant]
     Indication: ANAL FISSURE
     Dates: start: 20140312, end: 20140507
  15. ELOCON [Concomitant]
     Active Substance: MOMETASONE FUROATE
     Indication: BECKER^S NAEVUS
     Dates: start: 20130529
  16. FUNGORAL [Concomitant]
     Active Substance: KETOCONAZOLE
     Indication: FUNGAL INFECTION
     Dates: start: 20110803, end: 2011
  17. MELATONIN KARUNA [Concomitant]
     Indication: DELAYED SLEEP PHASE
     Dates: start: 20140409, end: 201409
  18. OTRIVIN [Concomitant]
     Active Substance: XYLOMETAZOLINE
     Indication: NASAL CONGESTION
     Dosage: UNK
  19. SIFROL [Concomitant]
     Active Substance: PRAMIPEXOLE
     Indication: RESTLESS LEGS SYNDROME
     Dates: start: 20131118, end: 201410

REACTIONS (8)
  - Muscle twitching [Recovered/Resolved]
  - Hepatic steatosis [Recovering/Resolving]
  - Aphasia [Recovering/Resolving]
  - Weight increased [Recovering/Resolving]
  - Cognitive disorder [Recovering/Resolving]
  - Fatigue [Recovering/Resolving]
  - Disturbance in attention [Recovering/Resolving]
  - Memory impairment [Recovering/Resolving]

NARRATIVE: CASE EVENT DATE: 20130611
